FAERS Safety Report 6148664-9 (Version None)
Quarter: 2009Q2

REPORT INFORMATION
  Report Type: 
  Country: None (occurrence: None)
  Receive Date: 20090406
  Receipt Date: 20090406
  Transmission Date: 20091009
  Serious: Yes (Disabling, Other)
  Sender: FDA-Public Use
  Company Number: None

PATIENT
  Age: 57 Year
  Sex: Female
  Weight: 70.7611 kg

DRUGS (1)
  1. LYRICA [Suspect]
     Indication: ANALGESIA
     Dates: start: 20081122, end: 20090110

REACTIONS (7)
  - BALANCE DISORDER [None]
  - FATIGUE [None]
  - READING DISORDER [None]
  - RESTLESS LEGS SYNDROME [None]
  - TREMOR [None]
  - VISION BLURRED [None]
  - WALKING AID USER [None]
